FAERS Safety Report 25384749 (Version 1)
Quarter: 2025Q2

REPORT INFORMATION
  Report Type: Spontaneous
  Country: NZ (occurrence: NZ)
  Receive Date: 20250602
  Receipt Date: 20250602
  Transmission Date: 20250717
  Serious: Yes (Death)
  Sender: MYLAN
  Company Number: NZ-MYLANLABS-2025M1045858

PATIENT
  Sex: Male

DRUGS (12)
  1. CLOZARIL [Suspect]
     Active Substance: CLOZAPINE
     Indication: Schizophrenia
     Dates: start: 20230428, end: 20250420
  2. OMEPRAZOLE [Concomitant]
     Active Substance: OMEPRAZOLE
  3. LORAZEPAM [Concomitant]
     Active Substance: LORAZEPAM
  4. ZOPICLONE [Concomitant]
     Active Substance: ZOPICLONE
  5. NORFLEX [Concomitant]
     Active Substance: ORPHENADRINE CITRATE
  6. TOLCAPONE [Concomitant]
     Active Substance: TOLCAPONE
  7. DOCUSATE SODIUM\SENNOSIDES A AND B [Concomitant]
     Active Substance: DOCUSATE SODIUM\SENNOSIDES A AND B
  8. CLONAZEPAM [Concomitant]
     Active Substance: CLONAZEPAM
  9. LEVODOPA [Concomitant]
     Active Substance: LEVODOPA
  10. BENSERAZIDE [Concomitant]
     Active Substance: BENSERAZIDE
  11. VITAMIN D [Concomitant]
     Active Substance: VITAMIN D NOS
  12. ACETAMINOPHEN [Concomitant]
     Active Substance: ACETAMINOPHEN

REACTIONS (1)
  - Death [Fatal]

NARRATIVE: CASE EVENT DATE: 20250101
